FAERS Safety Report 5594796-3 (Version None)
Quarter: 2008Q1

REPORT INFORMATION
  Report Type: 
  Country: None (occurrence: None)
  Receive Date: 20080117
  Receipt Date: 20080110
  Transmission Date: 20080703
  Serious: Yes (Hospitalization)
  Sender: FDA-Public Use
  Company Number: B0498601A

PATIENT
  Age: 75 Year
  Sex: Female

DRUGS (12)
  1. AUGMENTIN '125' [Suspect]
     Indication: BRONCHITIS
     Dosage: 3G PER DAY
     Route: 048
     Dates: start: 20070810, end: 20071005
  2. SURBRONC [Concomitant]
     Indication: BRONCHITIS
     Dosage: 3TBS PER DAY
     Route: 048
     Dates: start: 20070927, end: 20071005
  3. OFLOCET [Concomitant]
     Indication: BRONCHITIS
     Dosage: 400MG PER DAY
     Route: 048
     Dates: start: 20070919, end: 20070926
  4. PYOSTACINE [Concomitant]
     Indication: BRONCHITIS
     Dosage: 3G PER DAY
     Route: 048
     Dates: start: 20070927, end: 20071005
  5. SOLUPRED [Concomitant]
     Indication: BRONCHITIS
     Dosage: 20MG PER DAY
     Route: 048
     Dates: start: 20070810, end: 20071007
  6. ACETYLCYSTEINE [Concomitant]
     Indication: BRONCHITIS
     Dosage: 3SAC PER DAY
     Route: 048
     Dates: start: 20070906, end: 20070912
  7. PARACETAMOL [Concomitant]
     Indication: BRONCHITIS
     Dosage: 4G PER DAY
     Route: 065
     Dates: start: 20070906, end: 20070910
  8. COQUELUSEDAL [Concomitant]
     Indication: BRONCHITIS
     Dosage: 1SUP PER DAY
     Route: 054
     Dates: start: 20070919, end: 20070927
  9. CO-APROVEL [Concomitant]
     Dates: start: 19900101
  10. BISOPROLOL FUMARATE [Concomitant]
     Dates: start: 19900101
  11. ELISOR [Concomitant]
     Dates: start: 19900101
  12. ESBERIVEN FORT [Concomitant]
     Dates: start: 19900101

REACTIONS (18)
  - BILIARY CIRRHOSIS [None]
  - BILIRUBIN CONJUGATED ABNORMAL [None]
  - CHOLANGITIS [None]
  - CHOLESTASIS [None]
  - CHROMATURIA [None]
  - ESCHERICHIA SEPSIS [None]
  - FAECES DISCOLOURED [None]
  - HEPATITIS CHOLESTATIC [None]
  - HEPATOCELLULAR INJURY [None]
  - HYPOALBUMINAEMIA [None]
  - HYPOPROTEINAEMIA [None]
  - INFLAMMATION [None]
  - JAUNDICE [None]
  - NAUSEA [None]
  - PROTHROMBIN LEVEL DECREASED [None]
  - PRURITUS [None]
  - PYREXIA [None]
  - SCRATCH [None]
